FAERS Safety Report 8167472-0 (Version None)
Quarter: 2012Q1

REPORT INFORMATION
  Report Type: 
  Country: None (occurrence: None)
  Receive Date: 20120227
  Receipt Date: 20120220
  Transmission Date: 20120608
  Serious: Yes (Other)
  Sender: FDA-Public Use
  Company Number: US-PFIZER INC-2012044973

PATIENT
  Sex: Female
  Weight: 97.506 kg

DRUGS (12)
  1. CELEBREX [Suspect]
     Indication: OSTEOARTHRITIS
     Dosage: 200 MG, 2X/DAY
     Route: 048
     Dates: end: 20110101
  2. PRAVASTATIN [Concomitant]
     Dosage: UNK, 1X/DAY
  3. CELEBREX [Suspect]
     Dosage: UNK
     Route: 048
  4. ACETYLSALICYLIC ACID [Concomitant]
     Dosage: 81 MG, 1X/DAY
  5. SPIRONOLACTONE W/ HYDROCHLOROTHIAZIDE [Concomitant]
     Dosage: 25/25 MG, 1X/DAY
     Route: 048
  6. CELEBREX [Suspect]
     Dosage: 200 MG, 2X/DAY
     Route: 048
     Dates: start: 20110101
  7. ALPRAZOLAM [Concomitant]
     Dosage: 0.25 MG, 1X/DAY
  8. ALBUTEROL [Concomitant]
     Dosage: UNK
  9. VERAPAMIL [Concomitant]
     Dosage: 180 MG, 2X/DAY
  10. PREMARIN [Concomitant]
     Dosage: 0.625 MG, 1X/DAY
  11. LEVOTHYROXINE [Concomitant]
     Dosage: UNK
  12. TRAZODONE [Concomitant]
     Dosage: 50 MG, 1X/DAY

REACTIONS (6)
  - WEIGHT INCREASED [None]
  - THYROID FUNCTION TEST ABNORMAL [None]
  - MUSCULOSKELETAL STIFFNESS [None]
  - ABASIA [None]
  - PAIN [None]
  - FALL [None]
